FAERS Safety Report 7340090-X (Version None)
Quarter: 2011Q1

REPORT INFORMATION
  Report Type: 
  Country: None (occurrence: None)
  Receive Date: 20110309
  Receipt Date: 20110121
  Transmission Date: 20110831
  Serious: Yes (Hospitalization)
  Sender: FDA-Public Use
  Company Number: US-BAYER-2011-020996

PATIENT
  Sex: Female
  Weight: 66 kg

DRUGS (3)
  1. NAPROXEN SODIUM [Concomitant]
  2. YASMIN [Suspect]
     Indication: PREMENSTRUAL SYNDROME
     Dosage: UNK
     Dates: start: 20040601, end: 20040801
  3. ALBUTEROL [Concomitant]
     Dosage: UNK
     Dates: start: 20000101

REACTIONS (5)
  - OEDEMA PERIPHERAL [None]
  - PAIN [None]
  - HYPOAESTHESIA [None]
  - SUBCLAVIAN VEIN THROMBOSIS [None]
  - PARAESTHESIA [None]
